FAERS Safety Report 26120465 (Version 1)
Quarter: 2025Q4

REPORT INFORMATION
  Report Type: Spontaneous
  Country: EU (occurrence: EU)
  Receive Date: 20251204
  Receipt Date: 20251204
  Transmission Date: 20260117
  Serious: Yes (Other)
  Sender: GENMAB
  Company Number: EU-ABBVIE-6567275

PATIENT
  Sex: Male

DRUGS (1)
  1. EPCORITAMAB [Suspect]
     Active Substance: EPCORITAMAB
     Indication: Follicular lymphoma
     Dosage: UNK
     Route: 058

REACTIONS (2)
  - Granulocytosis [Unknown]
  - Neutropenia [Recovering/Resolving]
